FAERS Safety Report 4310226-3 (Version None)
Quarter: 2004Q1

REPORT INFORMATION
  Report Type: 
  Country: None (occurrence: None)
  Receive Date: 20040301
  Receipt Date: 20040301
  Transmission Date: 20041129
  Serious: No
  Sender: FDA-Public Use
  Company Number: None

PATIENT
  Sex: Female
  Weight: 68.0396 kg

DRUGS (1)
  1. DEPO-PROVERA [Suspect]
     Dates: start: 20020920, end: 20021120

REACTIONS (6)
  - ALOPECIA [None]
  - CONSTIPATION [None]
  - DEPRESSION [None]
  - DYSPAREUNIA [None]
  - LOSS OF LIBIDO [None]
  - WEIGHT INCREASED [None]
